FAERS Safety Report 7151978-7 (Version None)
Quarter: 2010Q4

REPORT INFORMATION
  Report Type: 
  Country: None (occurrence: None)
  Receive Date: 20101211
  Receipt Date: 20101202
  Transmission Date: 20110411
  Serious: Yes (Death)
  Sender: FDA-Public Use
  Company Number: JP-PFIZER INC-2010151216

PATIENT
  Age: 84 Year
  Sex: Female

DRUGS (7)
  1. LYRICA [Suspect]
     Indication: NEURALGIA
     Dosage: 150MG DAILY
     Route: 048
     Dates: start: 20100805, end: 20100831
  2. LYRICA [Suspect]
     Indication: CANCER PAIN
     Dosage: 75MG DAILY
     Route: 048
     Dates: start: 20100831, end: 20100915
  3. LYRICA [Suspect]
     Dosage: 25MG DAILY
     Route: 048
     Dates: start: 20101117, end: 20101121
  4. OXINORM [Concomitant]
  5. LOXOPROFEN [Concomitant]
  6. FENTANYL [Concomitant]
  7. TS-1 [Concomitant]

REACTIONS (4)
  - ASTHENIA [None]
  - DISEASE PROGRESSION [None]
  - FEELING ABNORMAL [None]
  - GASTRIC CANCER [None]
